FAERS Safety Report 4325260-7 (Version None)
Quarter: 2004Q1

REPORT INFORMATION
  Report Type: 
  Country: None (occurrence: None)
  Receive Date: 20040324
  Receipt Date: 20040312
  Transmission Date: 20041129
  Serious: Yes (Other)
  Sender: FDA-Public Use
  Company Number: 2004203040PR

PATIENT
  Sex: 0

DRUGS (1)
  1. BEXTRA [Suspect]

REACTIONS (1)
  - NEPHROTIC SYNDROME [None]
